FAERS Safety Report 4622169-6 (Version None)
Quarter: 2005Q1

REPORT INFORMATION
  Report Type: 
  Country: None (occurrence: None)
  Receive Date: 20050329
  Receipt Date: 20050316
  Transmission Date: 20050727
  Serious: Yes (Other)
  Sender: FDA-Public Use
  Company Number: 2005046470

PATIENT
  Age: 56 Year
  Sex: Male
  Weight: 91.5 kg

DRUGS (6)
  1. GABAPENTIN [Suspect]
     Indication: NEUROPATHIC PAIN
     Dosage: 1200 MG (1200 MG, 1 IN 1 D) ORAL
     Route: 048
     Dates: end: 20050215
  2. CAPECITABINE (CAPECITABINE) [Suspect]
     Indication: PANCREATIC CARCINOMA
     Dosage: 4 GRAM (4 GRAM, 1 IN 1 D) ORAL
     Route: 048
     Dates: start: 20050201, end: 20050214
  3. OMEPRAZOLE [Concomitant]
  4. DEXAMETHASONE [Concomitant]
  5. OXYCODONE HCL [Concomitant]
  6. FENTANYL CITRATE [Concomitant]

REACTIONS (6)
  - AGITATION [None]
  - CONFUSIONAL STATE [None]
  - DRUG TOXICITY [None]
  - MOVEMENT DISORDER [None]
  - PETIT MAL EPILEPSY [None]
  - POSTURE ABNORMAL [None]
